FAERS Safety Report 4934839-0 (Version None)
Quarter: 2006Q1

REPORT INFORMATION
  Report Type: 
  Country: None (occurrence: None)
  Receive Date: 20060302
  Receipt Date: 20060215
  Transmission Date: 20060701
  Serious: Yes (Other)
  Sender: FDA-Public Use
  Company Number: FR200601002524

PATIENT
  Age: 81 Year
  Sex: Female

DRUGS (11)
  1. FORTEO [Suspect]
     Indication: OSTEOPOROSIS
     Dosage: 20 UG, DAILY (1/D), SUBCUTANEOUS
     Route: 058
     Dates: start: 20041205
  2. FORTEO [Concomitant]
  3. HYDROCORTISONE [Concomitant]
  4. LEVOTHYROXINE SODIUM [Concomitant]
  5. ACETAMINOPHEN W/ PROPOXYPHENE HCL [Concomitant]
  6. EXELON /SCH/ (RIVASTIGMINE TARTRATE) [Concomitant]
  7. AERIUS /FIN/ (DESLORATADINE) [Concomitant]
  8. ENTOCORT (BUDESONIDE) [Concomitant]
  9. DEROXAT /SCH/ (PAROXETINE HYDROCHLORIDE) [Concomitant]
  10. CACIT D3 (CALCIUM CARBONATE, COLECALCIFEROL) [Concomitant]
  11. TRAMADOL HCL [Concomitant]

REACTIONS (2)
  - DEEP VEIN THROMBOSIS [None]
  - DIARRHOEA [None]
